FAERS Safety Report 12082518 (Version 1)
Quarter: 2016Q1

REPORT INFORMATION
  Report Type: Spontaneous
  Country: FR (occurrence: FR)
  Receive Date: 20160217
  Receipt Date: 20160217
  Transmission Date: 20160526
  Serious: Yes (Hospitalization)
  Sender: FDA-Public Use
  Company Number: FR-ROCHE-1711376

PATIENT
  Age: 89 Year
  Sex: Female

DRUGS (6)
  1. KEPPRA [Concomitant]
     Active Substance: LEVETIRACETAM
     Dosage: LATER ON ORAL ROUTE
     Route: 042
     Dates: start: 20150810, end: 20150819
  2. COUMADINE [Concomitant]
     Active Substance: WARFARIN SODIUM
     Route: 065
  3. FUNGIZONE [Concomitant]
     Active Substance: AMPHOTERICIN B
     Dosage: ONE APPLICATION THREE TIMES PER DAY UNTILL 27-AUG-2015
     Route: 065
  4. CANDESARTAN [Concomitant]
     Active Substance: CANDESARTAN
     Route: 065
  5. VALIUM [Suspect]
     Active Substance: DIAZEPAM
     Indication: ANXIETY
     Route: 048
     Dates: start: 20150819, end: 20150823
  6. ACEBUTOLOL [Concomitant]
     Active Substance: ACEBUTOLOL
     Route: 065

REACTIONS (1)
  - Coma [Recovering/Resolving]

NARRATIVE: CASE EVENT DATE: 20150823
